FAERS Safety Report 7434013-2 (Version None)
Quarter: 2011Q2

REPORT INFORMATION
  Report Type: 
  Country: None (occurrence: None)
  Receive Date: 20110425
  Receipt Date: 20091119
  Transmission Date: 20111010
  Serious: Yes (Death, Hospitalization, Other)
  Sender: FDA-Public Use
  Company Number: US-BAYER-200939998NA

PATIENT
  Age: 75 Year
  Sex: Female
  Weight: 76 kg

DRUGS (31)
  1. COUMADIN [Concomitant]
     Dosage: UNK (VARIED DOSE DAILY)
     Route: 048
  2. PROPOFOL [Concomitant]
     Dosage: 150 ?G, UNK
     Route: 042
     Dates: start: 20051111, end: 20051111
  3. GLYBURIDE [Concomitant]
     Dosage: 5 MG, BID (LONG TERM USE)
     Route: 048
     Dates: end: 20051101
  4. ISOFLURANE [Concomitant]
     Dosage: TITRATED UNK
     Dates: start: 20051111, end: 20051111
  5. POTASSIUM CHLORIDE [Concomitant]
     Dosage: 20 MEQ, UNK
     Route: 042
     Dates: start: 20051111, end: 20051111
  6. DIGOXIN [Concomitant]
     Dosage: 0.125 MG, QD (LONG TERM USE)
     Route: 048
  7. PREDNISONE [Concomitant]
     Dosage: 20 MG, QID X 3 DOSES
     Route: 048
     Dates: start: 20051001, end: 20051101
  8. TOPROL-XL [Concomitant]
     Dosage: 50 MG, QD
     Route: 048
  9. RED BLOOD CELLS [Concomitant]
     Dosage: 1 U, UNK
     Dates: start: 20051111
  10. TRASYLOL [Suspect]
     Indication: CARDIAC ABLATION
     Dosage: UNK (LOADING DOSE)
     Route: 042
     Dates: start: 20051111, end: 20051111
  11. KLOR-CON [Concomitant]
     Dosage: 10 MEQ, BID (LONG TERM USE)
     Route: 048
     Dates: end: 20051101
  12. LIPITOR [Concomitant]
     Dosage: 20 MG, QD
     Route: 048
  13. AMIODARONE [Concomitant]
     Dosage: UNK
     Route: 042
     Dates: start: 20051111
  14. NEO-SYNEPHRINOL [Concomitant]
     Dosage: 3 MG, UNK
     Route: 042
     Dates: start: 20051111, end: 20051111
  15. HEPARIN [Concomitant]
     Dosage: 20000 U, UNK
     Route: 042
     Dates: start: 20051111, end: 20051111
  16. TRASYLOL [Suspect]
     Indication: MITRAL VALVE REPLACEMENT
     Dosage: UNK (TEST DOSE)
     Route: 042
     Dates: start: 20051111, end: 20051111
  17. TRASYLOL [Suspect]
     Indication: COX-MAZE PROCEDURE
     Dosage: 200 ML PUMP PRIME, UNK
     Route: 042
     Dates: start: 20051111, end: 20051111
  18. CARDIZEM [Concomitant]
     Dosage: 360 MG, QD (LONG TERM USE)
     Route: 048
     Dates: end: 20051101
  19. LASIX [Concomitant]
     Dosage: 80 MG, QD (LONG TERM USE)
     Route: 048
  20. FENTANYL [Concomitant]
     Dosage: 15 ?G, UNK
     Route: 042
     Dates: start: 20051111, end: 20051111
  21. MIDAZOLAM [Concomitant]
     Dosage: 5 MG, UNK
     Route: 042
     Dates: start: 20051111, end: 20051111
  22. ROCURONIUM [Concomitant]
     Dosage: 50 MG, UNK
     Route: 042
     Dates: start: 20051111, end: 20051111
  23. CEFAZOLIN [Concomitant]
     Dosage: 1 G, UNK
     Route: 042
     Dates: start: 20051111, end: 20051111
  24. PAVULON [Concomitant]
     Dosage: 4 MG, UNK
     Route: 042
     Dates: start: 20051111, end: 20051111
  25. PROTAMINE SULFATE [Concomitant]
     Dosage: 250 MG, UNK
     Route: 042
     Dates: start: 20051111, end: 20051111
  26. CAPTOPRIL [Concomitant]
     Dosage: 50-100 MG, BID
     Route: 048
     Dates: end: 20051101
  27. ALLOPURINOL [Concomitant]
     Dosage: 100 MG, QD
     Route: 048
     Dates: end: 20051101
  28. NITROGLYCERIN [Concomitant]
     Dosage: UNK
     Route: 042
     Dates: start: 20051111
  29. MILRINONE [Concomitant]
     Dosage: UNK
     Route: 042
     Dates: start: 20051111
  30. MANNITOL [Concomitant]
     Dosage: 50 ML, UNK
     Route: 042
     Dates: start: 20051111, end: 20051111
  31. ALBUMIN (HUMAN) [Concomitant]
     Dosage: 50 ML, UNK
     Route: 042
     Dates: start: 20051111, end: 20051111

REACTIONS (12)
  - UNEVALUABLE EVENT [None]
  - EMOTIONAL DISTRESS [None]
  - INJURY [None]
  - RENAL IMPAIRMENT [None]
  - PAIN [None]
  - RENAL INJURY [None]
  - FEAR [None]
  - RENAL FAILURE [None]
  - CARDIOGENIC SHOCK [None]
  - STRESS [None]
  - ANXIETY [None]
  - ANHEDONIA [None]
